FAERS Safety Report 19310333 (Version 1)
Quarter: 2021Q2

REPORT INFORMATION
  Report Type: Spontaneous
  Country: US (occurrence: US)
  Receive Date: 20210526
  Receipt Date: 20210526
  Transmission Date: 20210717
  Serious: Yes (Other)
  Sender: FDA-Public Use
  Company Number: US-TAKEDA-2021TUS031935

PATIENT
  Sex: Male
  Weight: 86 kg

DRUGS (3)
  1. RIFAMPIN. [Concomitant]
     Active Substance: RIFAMPIN
     Indication: TUBERCULOSIS
     Dosage: UNK
  2. ENTYVIO [Suspect]
     Active Substance: VEDOLIZUMAB
     Indication: COLITIS
     Dosage: 300 MILLIGRAM
     Route: 042
     Dates: start: 202012
  3. MERCAPTOPURINE. [Concomitant]
     Active Substance: MERCAPTOPURINE
     Dosage: UNK

REACTIONS (2)
  - Tuberculosis [Unknown]
  - Therapeutic reaction time decreased [Unknown]
